FAERS Safety Report 18121009 (Version 2)
Quarter: 2020Q3

REPORT INFORMATION
  Report Type: Report from Study
  Country: None (occurrence: DE)
  Receive Date: 20200807
  Receipt Date: 20200812
  Transmission Date: 20201103
  Serious: Yes (Hospitalization)
  Sender: FDA-Public Use
  Company Number: DE-ABBVIE-20K-062-3512449-00

PATIENT
  Sex: Male

DRUGS (2)
  1. DUODOPA [Suspect]
     Active Substance: CARBIDOPA\LEVODOPA
     Indication: PARKINSON^S DISEASE
     Dosage: MD 7.5 ML; CRD 1: 4.1ML/H; CRD 2: 4.5 ML/H; CRN 3.8 ML/H; ED 2 ML
     Route: 050
     Dates: start: 20180827, end: 202008
  2. DUODOPA [Suspect]
     Active Substance: CARBIDOPA\LEVODOPA
     Route: 050
     Dates: start: 202008

REACTIONS (2)
  - Mobility decreased [Recovering/Resolving]
  - On and off phenomenon [Not Recovered/Not Resolved]
